FAERS Safety Report 4673758-4 (Version None)
Quarter: 2005Q2

REPORT INFORMATION
  Report Type: 
  Country: None (occurrence: None)
  Receive Date: 20050524
  Receipt Date: 20050511
  Transmission Date: 20051028
  Serious: Yes (Hospitalization)
  Sender: FDA-Public Use
  Company Number: 11113

PATIENT
  Age: 46 Year
  Sex: Female

DRUGS (5)
  1. EPIRUBICIN [Suspect]
  2. METHOTREXATE [Suspect]
  3. FLUOROURACIL [Suspect]
  4. ZOLEDRONIC ACID [Suspect]
     Indication: METASTASES TO BONE
     Dosage: 14 MG/ 2WK
     Dates: start: 20040129
  5. CYCLOPHOSPHAMIDE [Suspect]

REACTIONS (1)
  - FEBRILE NEUTROPENIA [None]
